FAERS Safety Report 6994161-8 (Version None)
Quarter: 2010Q3

REPORT INFORMATION
  Report Type: 
  Country: None (occurrence: None)
  Receive Date: 20100917
  Receipt Date: 20100126
  Transmission Date: 20110219
  Serious: No
  Sender: FDA-Public Use
  Company Number: US-ASTRAZENECA-2010SE03780

PATIENT
  Age: 59 Year
  Sex: Male

DRUGS (11)
  1. SEROQUEL [Suspect]
     Route: 048
  2. SYNTHROID [Concomitant]
  3. DARVOCET-N 100 [Concomitant]
  4. PROZAC [Concomitant]
  5. TYLENOL [Concomitant]
  6. CODEINE [Concomitant]
  7. METOPROLOL TARTRATE [Concomitant]
  8. LORAZEPAM [Concomitant]
  9. CLARITIN [Concomitant]
  10. PREDNISONE [Concomitant]
  11. LISINOPRIL [Concomitant]

REACTIONS (3)
  - FORMICATION [None]
  - PRURITUS [None]
  - URTICARIA [None]
